FAERS Safety Report 10379317 (Version 2)
Quarter: 2014Q3

REPORT INFORMATION
  Report Type: Spontaneous
  Country: JP (occurrence: JP)
  Receive Date: 20140812
  Receipt Date: 20140907
  Transmission Date: 20150326
  Serious: Yes (Death)
  Sender: FDA-Public Use
  Company Number: PHHY2014JP099808

PATIENT
  Age: 75 Year
  Sex: Female

DRUGS (1)
  1. GLIVEC [Suspect]
     Active Substance: IMATINIB MESYLATE
     Indication: GASTROINTESTINAL STROMAL TUMOUR
     Dosage: 400 MG, DAILY

REACTIONS (2)
  - Death [Fatal]
  - Rash [Unknown]
